FAERS Safety Report 4855584-6 (Version None)
Quarter: 2005Q4

REPORT INFORMATION
  Report Type: 
  Country: None (occurrence: None)
  Receive Date: 20051214
  Receipt Date: 20051201
  Transmission Date: 20060501
  Serious: Yes (Other)
  Sender: FDA-Public Use
  Company Number: 12992

PATIENT
  Age: 63 Year
  Sex: Female

DRUGS (1)
  1. CARBOPLATIN [Suspect]
     Indication: OVARIAN CANCER
     Dosage: 375 MG PER_CYCLE IV
     Route: 042
     Dates: start: 20050329, end: 20050329

REACTIONS (2)
  - ERYTHEMA [None]
  - INFUSION RELATED REACTION [None]
